FAERS Safety Report 9341607 (Version 1)
Quarter: 2013Q2

REPORT INFORMATION
  Report Type: Spontaneous
  Country: IT (occurrence: None)
  Receive Date: 20130606
  Receipt Date: 20130606
  Transmission Date: 20140414
  Serious: Yes (Other)
  Sender: FDA-Public Use
  Company Number: GER/ITL/13/0029831

PATIENT
  Age: 43 Year
  Sex: Male

DRUGS (1)
  1. RISPERIDONE (RISPERIDONE) [Suspect]
     Indication: MANIA
     Route: 048
     Dates: start: 20110318, end: 20120517

REACTIONS (2)
  - Psychotic behaviour [None]
  - Product substitution issue [None]
